FAERS Safety Report 13069316 (Version 1)
Quarter: 2016Q4

REPORT INFORMATION
  Report Type: Spontaneous
  Country: US (occurrence: US)
  Receive Date: 20161228
  Receipt Date: 20161228
  Transmission Date: 20170207
  Serious: Yes (Other)
  Sender: FDA-Public Use
  Company Number: PHEH2016US033718

PATIENT
  Sex: Female

DRUGS (1)
  1. FEMARA [Suspect]
     Active Substance: LETROZOLE
     Indication: NEOPLASM MALIGNANT
     Route: 065

REACTIONS (7)
  - Pain [Unknown]
  - Neoplasm malignant [Unknown]
  - Thyroid disorder [Unknown]
  - Alopecia [Unknown]
  - Blood pressure abnormal [Unknown]
  - Emotional disorder [Unknown]
  - Malignant neoplasm progression [Unknown]
